FAERS Safety Report 20451714 (Version 8)
Quarter: 2025Q1

REPORT INFORMATION
  Report Type: Spontaneous
  Country: US (occurrence: US)
  Receive Date: 20220209
  Receipt Date: 20250127
  Transmission Date: 20250409
  Serious: Yes (Hospitalization, Other)
  Sender: PFIZER
  Company Number: US-PFIZER INC-2021259758

PATIENT
  Age: 66 Year
  Sex: Female
  Weight: 50.8 kg

DRUGS (2)
  1. PREMARIN [Suspect]
     Active Substance: ESTROGENS, CONJUGATED
     Indication: Osteoporosis
     Dosage: 0.625 MG, 1X/DAY
     Route: 048
     Dates: start: 20180414
  2. PREMARIN [Suspect]
     Active Substance: ESTROGENS, CONJUGATED
     Indication: Hot flush

REACTIONS (5)
  - Peripheral artery thrombosis [Not Recovered/Not Resolved]
  - Dyspnoea [Unknown]
  - Arteriosclerosis [Not Recovered/Not Resolved]
  - Illness [Not Recovered/Not Resolved]
  - COVID-19 [Unknown]

NARRATIVE: CASE EVENT DATE: 20241224
